FAERS Safety Report 5074889-X (Version None)
Quarter: 2006Q3

REPORT INFORMATION
  Report Type: 
  Country: None (occurrence: None)
  Receive Date: 20060804
  Receipt Date: 20060724
  Transmission Date: 20061208
  Serious: Yes (Other)
  Sender: FDA-Public Use
  Company Number: CHPA2006US06483

PATIENT
  Age: 65 Year
  Sex: Female
  Weight: 62.6 kg

DRUGS (2)
  1. EXCEDRIN (MIGRAINE) [Suspect]
     Indication: ROTATOR CUFF SYNDROME
     Dosage: 1/2 CAPLET, 1 TO 3 TIMES PER DAY, ORAL
     Route: 048
     Dates: end: 20060601
  2. EXCEDRIN TENSION HEADACHE (ACETAMINOPHEN) [Suspect]
     Indication: ROTATOR CUFF SYNDROME
     Dosage: 1/2 CAPLET, 1 TO 3 TIMES A DAY, ORAL
     Route: 048
     Dates: start: 20060601

REACTIONS (4)
  - DRUG DEPENDENCE [None]
  - HAEMOGLOBIN ABNORMAL [None]
  - STOMACH DISCOMFORT [None]
  - UNDERDOSE [None]
